FAERS Safety Report 12088547 (Version 2)
Quarter: 2016Q3

REPORT INFORMATION
  Report Type: Report from Study
  Country: CA (occurrence: CA)
  Receive Date: 20160218
  Receipt Date: 20160804
  Transmission Date: 20161109
  Serious: Yes (Other)
  Sender: FDA-Public Use
  Company Number: CA-ROCHE-1545640

PATIENT
  Age: 48 Year
  Sex: Female

DRUGS (33)
  1. RITUXAN [Suspect]
     Active Substance: RITUXIMAB
     Route: 042
     Dates: start: 20150512
  2. OXCARBAZEPINE. [Concomitant]
     Active Substance: OXCARBAZEPINE
  3. FERROUS SULFATE. [Concomitant]
     Active Substance: FERROUS SULFATE
  4. MUPIROCIN. [Concomitant]
     Active Substance: MUPIROCIN
     Dosage: 2%
     Route: 065
  5. VOLTAREN [Concomitant]
     Active Substance: DICLOFENAC SODIUM
     Dosage: AS REQUIRED
     Route: 065
  6. BENADRYL [Concomitant]
     Active Substance: DIPHENHYDRAMINE HYDROCHLORIDE
     Indication: PREMEDICATION
     Route: 048
     Dates: start: 20140411
  7. NYSTATIN. [Concomitant]
     Active Substance: NYSTATIN
     Dosage: AS REQUIRED
     Route: 065
  8. PREDNISONE. [Concomitant]
     Active Substance: PREDNISONE
  9. LIDOCAINE. [Concomitant]
     Active Substance: LIDOCAINE
     Route: 045
  10. RITUXAN [Suspect]
     Active Substance: RITUXIMAB
     Indication: GRANULOMATOSIS WITH POLYANGIITIS
     Dosage: FREQUENCY: DAY 1 AND DAY 15. LAST RITUXAN 24-OCT-2014
     Route: 042
     Dates: start: 20140411
  11. OXAZEPAM. [Concomitant]
     Active Substance: OXAZEPAM
  12. KETAMINE [Concomitant]
     Active Substance: KETAMINE
     Route: 045
  13. SALINE [Concomitant]
     Active Substance: SODIUM CHLORIDE
     Dosage: WATER
     Route: 045
  14. PREGABALIN. [Concomitant]
     Active Substance: PREGABALIN
  15. SALBUTAMOL [Concomitant]
     Active Substance: ALBUTEROL
     Dosage: AS REQUIRED
     Route: 065
  16. SEREVENT DISKUS [Concomitant]
     Active Substance: SALMETEROL XINAFOATE
  17. D-TABS [Concomitant]
     Active Substance: CHOLECALCIFEROL
  18. MYOFLEX (CANADA) [Concomitant]
     Route: 061
  19. FOLIC ACID. [Concomitant]
     Active Substance: FOLIC ACID
  20. SOLU-MEDROL [Concomitant]
     Active Substance: METHYLPREDNISOLONE SODIUM SUCCINATE
     Indication: PREMEDICATION
     Route: 042
     Dates: start: 20140411
  21. HYDROMORPHONE [Concomitant]
     Active Substance: HYDROMORPHONE
  22. DOMPERIDONE [Concomitant]
     Active Substance: DOMPERIDONE
     Dosage: AS REQUIRED
     Route: 065
  23. CYMBALTA [Concomitant]
     Active Substance: DULOXETINE HYDROCHLORIDE
  24. PANTOPRAZOLE [Concomitant]
     Active Substance: PANTOPRAZOLE SODIUM
  25. OXYCODONE HYDROCHLORIDE. [Concomitant]
     Active Substance: OXYCODONE HYDROCHLORIDE
  26. FLOVENT [Concomitant]
     Active Substance: FLUTICASONE PROPIONATE
  27. ALENDRONATE [Concomitant]
     Active Substance: ALENDRONATE SODIUM
  28. EURO-K [Concomitant]
  29. PULMICORT TURBUHALER [Concomitant]
     Active Substance: BUDESONIDE
  30. TYLENOL [Concomitant]
     Active Substance: ACETAMINOPHEN
     Indication: PREMEDICATION
     Route: 048
     Dates: start: 20140411
  31. DOCUSATE [Concomitant]
     Active Substance: DOCUSATE
  32. VITAMIN B12 [Concomitant]
     Active Substance: CYANOCOBALAMIN
  33. EURO-LAC [Concomitant]

REACTIONS (8)
  - Pneumonia [Recovered/Resolved]
  - Pneumonia [Unknown]
  - Volvulus [Recovered/Resolved]
  - Granulomatosis with polyangiitis [Not Recovered/Not Resolved]
  - Hypotension [Unknown]
  - Fall [Unknown]
  - Oxygen saturation decreased [Unknown]
  - Muscular weakness [Recovered/Resolved]

NARRATIVE: CASE EVENT DATE: 201410
